FAERS Safety Report 10949208 (Version 2)
Quarter: 2015Q2

REPORT INFORMATION
  Report Type: Spontaneous
  Country: US (occurrence: US)
  Receive Date: 20150324
  Receipt Date: 20150401
  Transmission Date: 20150821
  Serious: Yes (Death, Other)
  Sender: FDA-Public Use
  Company Number: US-PFIZER INC-2015098983

PATIENT
  Age: 47 Year
  Sex: Female

DRUGS (2)
  1. ISONIAZID. [Interacting]
     Active Substance: ISONIAZID
     Dosage: UNK
  2. DILANTIN [Suspect]
     Active Substance: PHENYTOIN
     Indication: CONVULSION PROPHYLAXIS
     Dosage: 300 MG, DAILY

REACTIONS (4)
  - Toxicity to various agents [Unknown]
  - Drug interaction [Unknown]
  - Meningitis tuberculous [Fatal]
  - Cerebellar atrophy [Unknown]
